FAERS Safety Report 7034216-5 (Version None)
Quarter: 2010Q4

REPORT INFORMATION
  Report Type: 
  Country: None (occurrence: None)
  Receive Date: 20101008
  Receipt Date: 20100930
  Transmission Date: 20110411
  Serious: Yes (Other)
  Sender: FDA-Public Use
  Company Number: US-BIOGENIDEC-2009BI041245

PATIENT
  Age: 71 Year
  Sex: Male

DRUGS (3)
  1. AVONEX [Suspect]
     Indication: MULTIPLE SCLEROSIS
     Route: 030
     Dates: start: 20090301, end: 20100701
  2. AVONEX [Suspect]
     Route: 030
     Dates: start: 20090301, end: 20100701
  3. AVONEX [Suspect]
     Route: 030
     Dates: start: 20100927

REACTIONS (1)
  - PROSTATE CANCER STAGE II [None]
